FAERS Safety Report 5301596-8 (Version None)
Quarter: 2007Q2

REPORT INFORMATION
  Report Type: 
  Country: None (occurrence: None)
  Receive Date: 20070419
  Receipt Date: 20070410
  Transmission Date: 20071010
  Serious: Yes (Hospitalization)
  Sender: FDA-Public Use
  Company Number: US-JNJFOC-20070402412

PATIENT
  Age: 44 Year
  Sex: Female

DRUGS (4)
  1. REMICADE [Suspect]
     Route: 042
  2. REMICADE [Suspect]
     Route: 042
  3. REMICADE [Suspect]
     Indication: CROHN'S DISEASE
     Route: 042
  4. PREDNISONE [Concomitant]
     Indication: CROHN'S DISEASE

REACTIONS (3)
  - BRONCHIAL HYPERREACTIVITY [None]
  - INFUSION RELATED REACTION [None]
  - PARAESTHESIA [None]
